FAERS Safety Report 4757596-X (Version None)
Quarter: 2005Q3

REPORT INFORMATION
  Report Type: 
  Country: None (occurrence: None)
  Receive Date: 20050831
  Receipt Date: 20050817
  Transmission Date: 20060218
  Serious: Yes (Hospitalization)
  Sender: FDA-Public Use
  Company Number: 2005SE04772

PATIENT
  Sex: Female
  Weight: 100 kg

DRUGS (4)
  1. SEROQUEL [Suspect]
     Dosage: 300+400 MG DAILY
     Route: 048
     Dates: start: 20040920, end: 20041209
  2. REMERON [Suspect]
     Route: 048
     Dates: start: 20040820, end: 20050314
  3. RISPERDAL [Suspect]
     Dosage: 0.5-1 MG TWICE DAILY
     Route: 048
     Dates: start: 20040824, end: 20040920
  4. ZYPREXA [Suspect]
     Indication: MAJOR DEPRESSION
     Dosage: 15-20 MG IN THE EVENING
     Route: 048
     Dates: start: 20041205

REACTIONS (9)
  - ABDOMINAL PAIN [None]
  - BLOOD PROLACTIN INCREASED [None]
  - GALACTORRHOEA [None]
  - HEADACHE [None]
  - NAUSEA [None]
  - ORTHOSTATIC HYPOTENSION [None]
  - SINUS TACHYCARDIA [None]
  - SYNCOPE [None]
  - WEIGHT INCREASED [None]
